FAERS Safety Report 24845478 (Version 1)
Quarter: 2025Q1

REPORT INFORMATION
  Report Type: Spontaneous
  Country: GB (occurrence: GB)
  Receive Date: 20250115
  Receipt Date: 20250115
  Transmission Date: 20250409
  Serious: Yes (Other)
  Sender: PFIZER
  Company Number: None

PATIENT
  Age: 86 Year
  Sex: Male
  Weight: 92 kg

DRUGS (4)
  1. DOXYCYCLINE [Suspect]
     Active Substance: DOXYCYCLINE
     Dosage: 1 DF, 1X/DAY (TWO TO BE TAKEN ON THE FIRST DAY THEN ONE TO BE TAKEN EACH DAY)
     Dates: start: 20241104, end: 20241227
  2. ADJUVANTED QUADRIVALENT INFLUENZA VACCINE [Concomitant]
     Indication: Osteoarthritis
     Dates: start: 20241205, end: 20241205
  3. BRETOVAMERAN [Concomitant]
     Active Substance: BRETOVAMERAN
     Route: 030
     Dates: start: 20241205
  4. CLARITHROMYCIN [Concomitant]
     Active Substance: CLARITHROMYCIN
     Dates: start: 20241222

REACTIONS (1)
  - Panic attack [Not Recovered/Not Resolved]
